FAERS Safety Report 7410417-9 (Version None)
Quarter: 2011Q2

REPORT INFORMATION
  Report Type: 
  Country: None (occurrence: None)
  Receive Date: 20110412
  Receipt Date: 20090122
  Transmission Date: 20111010
  Serious: Yes (Other)
  Sender: FDA-Public Use
  Company Number: DE-GENENTECH-316485

PATIENT
  Age: 84 Year
  Sex: Female

DRUGS (1)
  1. LUCENTIS [Suspect]
     Indication: MACULAR DEGENERATION
     Dosage: UNK
     Route: 031
     Dates: start: 20080212

REACTIONS (9)
  - VISUAL ACUITY REDUCED [None]
  - EYE INJURY [None]
  - OCULAR HYPERAEMIA [None]
  - MUSCULOSKELETAL DISCOMFORT [None]
  - CARDIOVASCULAR DISORDER [None]
  - HYPOPYON [None]
  - MALAISE [None]
  - EYE INFLAMMATION [None]
  - NASOPHARYNGITIS [None]
